FAERS Safety Report 9599622 (Version 1)
Quarter: 2013Q4

REPORT INFORMATION
  Report Type: Spontaneous
  Country: US (occurrence: US)
  Receive Date: 20131004
  Receipt Date: 20131004
  Transmission Date: 20140711
  Serious: No
  Sender: FDA-Public Use
  Company Number: US-AMGEN-USASP2013030605

PATIENT
  Age: 58 Year
  Sex: Female

DRUGS (1)
  1. ENBREL [Suspect]
     Indication: RHEUMATOID ARTHRITIS
     Dosage: UNK
     Dates: start: 20130215, end: 201303

REACTIONS (3)
  - Streptococcal infection [Not Recovered/Not Resolved]
  - Infection [Not Recovered/Not Resolved]
  - Kidney infection [Not Recovered/Not Resolved]
